FAERS Safety Report 7297421-9 (Version None)
Quarter: 2011Q1

REPORT INFORMATION
  Report Type: 
  Country: None (occurrence: None)
  Receive Date: 20110207
  Receipt Date: 20110125
  Transmission Date: 20110831
  Serious: Yes (Hospitalization, Other)
  Sender: FDA-Public Use
  Company Number: 026223

PATIENT
  Weight: 81 kg

DRUGS (5)
  1. PREDNISONE TAB [Concomitant]
  2. FOLIC ACID [Concomitant]
  3. CALCIGEN D [Concomitant]
  4. CIMZIA [Suspect]
     Indication: RHEUMATOID ARTHRITIS
     Dosage: 400 MG, 1X/2 WEEKS, SUBCUTANEOUS
     Route: 058
     Dates: start: 20101007, end: 20101104
  5. METEX [Concomitant]

REACTIONS (8)
  - HYPERSENSITIVITY [None]
  - CARTILAGE ATROPHY [None]
  - FATIGUE [None]
  - DIARRHOEA [None]
  - RASH [None]
  - DRUG INTOLERANCE [None]
  - OEDEMA PERIPHERAL [None]
  - WEIGHT DECREASED [None]
